FAERS Safety Report 19883669 (Version 1)
Quarter: 2021Q3

REPORT INFORMATION
  Report Type: Spontaneous
  Country: US (occurrence: US)
  Receive Date: 20210923
  Receipt Date: 20210923
  Transmission Date: 20211014
  Serious: No
  Sender: FDA-Public Use
  Company Number: None

PATIENT
  Age: 78 Year
  Sex: Male
  Weight: 59.42 kg

DRUGS (1)
  1. LABETALOL (LABETALOL HCL 5MG/ML INJ, SYRINGE, 5ML) [Suspect]
     Active Substance: LABETALOL HYDROCHLORIDE
     Indication: HYPERTENSION
     Route: 042
     Dates: start: 20210610, end: 20210610

REACTIONS (5)
  - Wheezing [None]
  - Bradycardia [None]
  - Cough [None]
  - Palpitations [None]
  - Atrioventricular block [None]

NARRATIVE: CASE EVENT DATE: 20210610
